FAERS Safety Report 10306302 (Version 2)
Quarter: 2014Q3

REPORT INFORMATION
  Report Type: Spontaneous
  Country: US (occurrence: None)
  Receive Date: 20120817
  Receipt Date: 20140815
  Transmission Date: 20150326
  Serious: Yes (Hospitalization, Other)
  Sender: FDA-Public Use
  Company Number: ADR-2011-10659

PATIENT
  Age: 8 Year
  Sex: Male

DRUGS (2)
  1. LIORESAL [Suspect]
     Active Substance: BACLOFEN
     Indication: MUSCLE SPASTICITY
     Dosage: UNK MCG/DAY- SEE B5
  2. GABLOFEN [Suspect]
     Active Substance: BACLOFEN

REACTIONS (7)
  - Hyperhidrosis [None]
  - Muscle spasticity [None]
  - Infusion site infection [None]
  - Hypertension [None]
  - Tachycardia [None]
  - Agitation [None]
  - Device related infection [None]

NARRATIVE: CASE EVENT DATE: 20100506
